FAERS Safety Report 8323059 (Version 3)
Quarter: 2012Q4

REPORT INFORMATION
  Report Type: 
  Country: US (occurrence: US)
  Receive Date: 20120105
  Receipt Date: 20121008
  Transmission Date: 20130627
  Serious: Yes (Hospitalization)
  Sender: FDA-Public Use
  Company Number: US-PURDUE-USA-2011-0080344

PATIENT
  Age: 61 Year
  Sex: Male

DRUGS (2)
  1. OXYCONTIN (NDA 22-272) [Suspect]
     Indication: PRODUCT USED FOR UNKNOWN INDICATION
     Dosage: 320 mg, bid
     Route: 048
  2. OXYCONTIN (NDA 22-272) [Suspect]
     Dosage: 80 mg, q12h
     Route: 048

REACTIONS (5)
  - Substance abuse [Recovered/Resolved]
  - Hepatic cirrhosis [Not Recovered/Not Resolved]
  - Pancreatitis [Recovered/Resolved]
  - Alcohol withdrawal syndrome [Recovered/Resolved]
  - Unevaluable event [Recovered/Resolved]
